FAERS Safety Report 7803495-6 (Version None)
Quarter: 2011Q4

REPORT INFORMATION
  Report Type: 
  Country: None (occurrence: None)
  Receive Date: 20111007
  Receipt Date: 20110930
  Transmission Date: 20120403
  Serious: Yes (Other)
  Sender: FDA-Public Use
  Company Number: JP-AMGEN-JPNCT2010008245

PATIENT
  Age: 65 Year
  Sex: Female
  Weight: 38 kg

DRUGS (15)
  1. CORTICOSTEROIDS [Concomitant]
     Indication: PROPHYLAXIS
     Dosage: UNK
     Route: 065
  2. RABEPRAZOLE SODIUM [Concomitant]
     Dosage: UNK
     Route: 048
  3. VOLTAREN SUPPO [Concomitant]
     Dosage: UNK
     Route: 054
  4. LOXONIN [Concomitant]
     Dosage: UNK
     Route: 048
  5. ALLEGRA [Concomitant]
     Dosage: UNK
     Route: 048
  6. ANPLAG [Concomitant]
     Dosage: UNK
     Route: 048
  7. TSUMURA HOCHUUEKKITOU [Concomitant]
     Dosage: UNK
     Route: 048
  8. BETAMETHASONE [Concomitant]
     Dosage: UNK
     Route: 048
  9. VITANEURIN [Concomitant]
     Dosage: UNK
     Route: 048
  10. PRORENAL [Concomitant]
     Dosage: UNK
     Route: 048
  11. LOPERAMIDE HCL [Concomitant]
     Dosage: UNK
     Route: 048
  12. ANTIHISTAMINES [Concomitant]
     Indication: PROPHYLAXIS
     Dosage: UNK
  13. ZOLPIDEM [Concomitant]
     Dosage: UNK
     Route: 048
  14. PANITUMUMAB [Suspect]
     Indication: COLORECTAL CANCER
     Dosage: 6 MG/KG, Q2WK
     Route: 041
     Dates: start: 20100910, end: 20101105
  15. ZOMETA [Concomitant]
     Dosage: UNK
     Route: 042

REACTIONS (8)
  - RASH [None]
  - PARONYCHIA [None]
  - STOMATITIS [None]
  - GLOSSITIS [None]
  - SCIATICA [None]
  - DRY SKIN [None]
  - INTESTINAL OBSTRUCTION [None]
  - PRURITUS [None]
